FAERS Safety Report 24756887 (Version 1)
Quarter: 2024Q4

REPORT INFORMATION
  Report Type: Spontaneous
  Country: IT (occurrence: IT)
  Receive Date: 20241220
  Receipt Date: 20241220
  Transmission Date: 20250115
  Serious: Yes (Other)
  Sender: ROCHE
  Company Number: None

PATIENT
  Age: 80 Year
  Sex: Male
  Weight: 73 kg

DRUGS (3)
  1. BEVACIZUMAB [Suspect]
     Active Substance: BEVACIZUMAB
     Indication: Adenocarcinoma of colon
     Route: 042
     Dates: start: 20240417, end: 20240417
  2. FLUOROURACIL [Suspect]
     Active Substance: FLUOROURACIL
     Indication: Adenocarcinoma of colon
     Dosage: BOLUS ADMINISTRATION
     Route: 042
     Dates: start: 20240417, end: 20240417
  3. FLUOROURACIL [Suspect]
     Active Substance: FLUOROURACIL
     Route: 042
     Dates: start: 20240417, end: 20240417

REACTIONS (4)
  - Aspartate aminotransferase increased [Recovering/Resolving]
  - Thrombocytopenia [Recovering/Resolving]
  - Pyrexia [Recovered/Resolved]
  - Productive cough [Recovering/Resolving]

NARRATIVE: CASE EVENT DATE: 20240420
